FAERS Safety Report 18532353 (Version 2)
Quarter: 2021Q4

REPORT INFORMATION
  Report Type: Spontaneous
  Country: NL (occurrence: NL)
  Receive Date: 20201123
  Receipt Date: 20211029
  Transmission Date: 20220303
  Serious: Yes (Life-Threatening, Hospitalization, Other)
  Sender: FDA-Public Use
  Company Number: None

PATIENT
  Age: 43 Year
  Sex: Male

DRUGS (2)
  1. LAMICTAL [Suspect]
     Active Substance: LAMOTRIGINE
     Indication: Depersonalisation/derealisation disorder
     Dosage: THERAPY END DATE: ASKED BUT UNKNOWN , ADDITIONAL INFO :MORE THAN 15 YEARS OF USE
     Dates: start: 20200801
  2. EFFEXOR [Concomitant]
     Active Substance: VENLAFAXINE HYDROCHLORIDE
     Dosage: 75 MG, THERAPY START DATE: ASKED BUT UNKNOWN , ADDITIONAL INFO : MORE THAN 15 YEARS OF USE. RESTART
     Dates: end: 2020

REACTIONS (1)
  - Haemophagocytic lymphohistiocytosis [Unknown]

NARRATIVE: CASE EVENT DATE: 20200820
